FAERS Safety Report 14838108 (Version 2)
Quarter: 2018Q2

REPORT INFORMATION
  Report Type: Spontaneous
  Country: FR (occurrence: FR)
  Receive Date: 20180502
  Receipt Date: 20180524
  Transmission Date: 20180711
  Serious: Yes (Life-Threatening, Other)
  Sender: FDA-Public Use
  Company Number: FR-MYLANLABS-2018M1027385

PATIENT
  Age: 67 Year
  Sex: Male
  Weight: 67 kg

DRUGS (8)
  1. EPHEDRINE AGUETTANT 0,3 %, SOLUTION INJECTABLE EN SERINGUE PR?REMPLIE [Suspect]
     Active Substance: EPHEDRINE
     Indication: GENERAL ANAESTHESIA
     Dosage: 27 MG, TOTAL, 27 MG SINGLE
     Route: 042
     Dates: start: 20170804, end: 20170804
  2. KETAMINE PANPHARMA 50 MG/5 ML, SOLUTION INJECTABLE (I.V.-I.M.) [Suspect]
     Active Substance: KETAMINE
     Indication: GENERAL ANAESTHESIA
     Dosage: 30 MG, TOTAL 30 MG SINGLE
     Route: 042
     Dates: start: 20170804, end: 20170804
  3. AMOXICILLINE ACIDE CLAVULANIQUE SANDOZ [Suspect]
     Active Substance: AMOXICILLIN\CLAVULANATE POTASSIUM
     Indication: ANTIBIOTIC PROPHYLAXIS
     Dosage: 2 G, TOTAL, 2 G SINGLE
     Route: 042
     Dates: start: 20170804, end: 20170804
  4. DEXAMETHASONE MYLAN 4 MG/1 ML, SOLUTION INJECTABLE EN AMPOULE [Suspect]
     Active Substance: DEXAMETHASONE
     Indication: GENERAL ANAESTHESIA
     Dosage: 8 MG, TOTAL 8 MG, SINGLE
     Route: 042
     Dates: start: 20170804, end: 20170804
  5. LIDOCAINE AGUETTANT [Suspect]
     Active Substance: LIDOCAINE
     Indication: GENERAL ANAESTHESIA
     Route: 008
  6. PROPOFOL PANPHARMA 10 MG/ML, ?MULSION INJECTABLE [Suspect]
     Active Substance: PROPOFOL
     Indication: GENERAL ANAESTHESIA
     Dosage: 150 MG, TOTAL, 150 MG SINGLE
     Route: 042
     Dates: start: 20170804, end: 20170804
  7. ULTIVA [Suspect]
     Active Substance: REMIFENTANIL HYDROCHLORIDE
     Indication: GENERAL ANAESTHESIA
     Dosage: 52 ?G, TOTAL, 52 ?G SINGLE
     Route: 042
     Dates: start: 20170804, end: 20170804
  8. CISATRACURIUM MYLAN 5 MG/ML, SOLUTION INJECTABLE/POUR PERFUSION [Suspect]
     Active Substance: CISATRACURIUM
     Indication: GENERAL ANAESTHESIA
     Dosage: 10 MG, TOTAL, 10 MG SINGLE
     Route: 042
     Dates: start: 20170804, end: 20170804

REACTIONS (2)
  - Bronchospasm [Recovered/Resolved]
  - Anaphylactic shock [Recovered/Resolved]

NARRATIVE: CASE EVENT DATE: 20170804
